FAERS Safety Report 20720516 (Version 3)
Quarter: 2024Q4

REPORT INFORMATION
  Report Type: Report from Study
  Country: US (occurrence: US)
  Receive Date: 20220418
  Receipt Date: 20241008
  Transmission Date: 20250115
  Serious: No
  Sender: NOVARTIS
  Company Number: US-NOVARTISTESTPH-NVSC2022US089534

PATIENT
  Sex: Female

DRUGS (1)
  1. COSENTYX [Suspect]
     Active Substance: SECUKINUMAB
     Indication: Psoriatic arthropathy
     Dosage: UNK, QMO
     Route: 058

REACTIONS (5)
  - Irritable bowel syndrome [Unknown]
  - Abdominal discomfort [Unknown]
  - Epistaxis [Unknown]
  - Gastrointestinal motility disorder [Unknown]
  - Abdominal pain [Unknown]
